FAERS Safety Report 10066937 (Version 1)
Quarter: 2014Q2

REPORT INFORMATION
  Report Type: Spontaneous
  Country: FR (occurrence: FR)
  Receive Date: 20140409
  Receipt Date: 20140409
  Transmission Date: 20141212
  Serious: Yes (Hospitalization)
  Sender: FDA-Public Use
  Company Number: FR-ROCHE-1379320

PATIENT
  Age: 65 Year
  Sex: Female

DRUGS (10)
  1. HERCEPTIN [Suspect]
     Indication: BREAST CANCER
     Route: 042
     Dates: start: 20131126
  2. HERCEPTIN [Suspect]
     Route: 042
     Dates: start: 20131126
  3. HERCEPTIN [Suspect]
     Route: 042
     Dates: start: 20131218
  4. HERCEPTIN [Suspect]
     Route: 042
     Dates: start: 20140116, end: 20140122
  5. TAXOL [Suspect]
     Indication: PRODUCT USED FOR UNKNOWN INDICATION
     Route: 042
     Dates: start: 20140116
  6. TAXOL [Suspect]
     Route: 042
     Dates: start: 20131218, end: 20140122
  7. SOLUPRED (FRANCE) [Concomitant]
     Route: 065
  8. TAXOTERE [Concomitant]
  9. NOVONORM [Concomitant]
     Route: 065
     Dates: end: 20140202
  10. ACTRAPID [Concomitant]
     Route: 065
     Dates: start: 20140202

REACTIONS (1)
  - Sepsis [Recovered/Resolved]
